FAERS Safety Report 25607315 (Version 1)
Quarter: 2025Q3

REPORT INFORMATION
  Report Type: Spontaneous
  Country: CA (occurrence: CA)
  Receive Date: 20250725
  Receipt Date: 20250725
  Transmission Date: 20251020
  Serious: Yes (Other)
  Sender: AMGEN
  Company Number: CA-AMGEN-CANSP2025140897

PATIENT
  Age: 47 Year
  Sex: Female

DRUGS (8)
  1. ADALIMUMAB [Suspect]
     Active Substance: ADALIMUMAB
     Indication: Psoriasis
     Route: 065
  2. ADALIMUMAB [Suspect]
     Active Substance: ADALIMUMAB
     Indication: Hidradenitis
  3. CHLORTHALIDONE [Concomitant]
     Active Substance: CHLORTHALIDONE
  4. PERINDOPRIL [Concomitant]
     Active Substance: PERINDOPRIL
  5. CITALOPRAM [Concomitant]
     Active Substance: CITALOPRAM
  6. ZOPICLONE [Concomitant]
     Active Substance: ZOPICLONE
  7. LISDEXAMFETAMINE [Concomitant]
     Active Substance: LISDEXAMFETAMINE
  8. SEMAGLUTIDE [Concomitant]
     Active Substance: SEMAGLUTIDE

REACTIONS (4)
  - Crohn^s disease [Unknown]
  - Iridocyclitis [Unknown]
  - Beta haemolytic streptococcal infection [Unknown]
  - Vulvovaginal candidiasis [Unknown]
